FAERS Safety Report 6774015-2 (Version None)
Quarter: 2010Q2

REPORT INFORMATION
  Report Type: 
  Country: None (occurrence: None)
  Receive Date: 20100617
  Receipt Date: 20100604
  Transmission Date: 20101027
  Serious: Yes (Hospitalization, Other)
  Sender: FDA-Public Use
  Company Number: US-ELI_LILLY_AND_COMPANY-US200904001858

PATIENT
  Sex: Female

DRUGS (9)
  1. FORTEO [Suspect]
     Indication: OSTEOARTHRITIS
     Dosage: 20 UG, DAILY (1/D)
     Dates: start: 20060124, end: 20070801
  2. ADVAIR DISKUS 100/50 [Concomitant]
  3. SPIRIVA [Concomitant]
  4. ALBUTEROL [Concomitant]
  5. ASPIRIN [Concomitant]
  6. NITROGLYCERIN [Concomitant]
  7. CARTIA /USA/ [Concomitant]
  8. OXYTROL [Concomitant]
  9. ZEGERID [Concomitant]

REACTIONS (14)
  - ADRENAL NEOPLASM [None]
  - ARTHRITIS [None]
  - CARCINOEMBRYONIC ANTIGEN INCREASED [None]
  - CATHETERISATION CARDIAC [None]
  - COLITIS ISCHAEMIC [None]
  - DIPLOPIA [None]
  - HAEMOGLOBIN DECREASED [None]
  - MACULOPATHY [None]
  - MUSCULOSKELETAL DISORDER [None]
  - RECTAL HAEMORRHAGE [None]
  - SPINAL DISORDER [None]
  - SPINAL OSTEOARTHRITIS [None]
  - SPONDYLITIS [None]
  - SYSTEMIC LUPUS ERYTHEMATOSUS [None]
